FAERS Safety Report 9507135 (Version 1)
Quarter: 2013Q3

REPORT INFORMATION
  Report Type: Report from Study
  Country: US (occurrence: US)
  Receive Date: 20130909
  Receipt Date: 20130909
  Transmission Date: 20140515
  Serious: Yes (Hospitalization)
  Sender: FDA-Public Use
  Company Number: US-EISAI INC-E7389-04156-CLI-US

PATIENT
  Age: 46 Year
  Sex: Female
  Weight: 59 kg

DRUGS (4)
  1. E7389 (BOLD) [Suspect]
     Indication: BREAST CANCER
     Route: 041
     Dates: start: 20130730
  2. E7389 (BOLD) [Suspect]
     Dosage: DOSE REDUCED
     Route: 041
  3. DOXORUBICIN [Concomitant]
     Indication: BREAST CANCER
     Route: 041
     Dates: start: 20130528, end: 20130709
  4. CYCLOPHOSPHAMIDE [Concomitant]
     Indication: BREAST CANCER
     Route: 041
     Dates: start: 20130528, end: 20130709

REACTIONS (3)
  - Mucosal inflammation [Recovered/Resolved]
  - Lung infection [Recovered/Resolved]
  - Febrile neutropenia [Recovered/Resolved]
